FAERS Safety Report 9252802 (Version 1)
Quarter: 2013Q2

REPORT INFORMATION
  Report Type: Report from Study
  Country: GB (occurrence: GB)
  Receive Date: 20130424
  Receipt Date: 20130424
  Transmission Date: 20140414
  Serious: Yes (Hospitalization)
  Sender: FDA-Public Use
  Company Number: GB-AMGEN-GBRCT2013028161

PATIENT
  Age: 66 Year
  Sex: Male
  Weight: 118.4 kg

DRUGS (6)
  1. ETANERCEPT [Suspect]
     Indication: PRODUCT USED FOR UNKNOWN INDICATION
     Dosage: 50 MG, QWK
     Dates: start: 20120726
  2. ACETYLSALICYLIC ACID [Concomitant]
     Dosage: UNK
     Dates: start: 19990506
  3. DIAZEPAM [Concomitant]
     Dosage: UNK
     Dates: start: 19980219
  4. METFORMIN [Concomitant]
     Dosage: UNK
     Dates: start: 20020312
  5. RAMIPRIL [Concomitant]
     Dosage: UNK
     Dates: start: 20020507
  6. SIMVASTATIN [Concomitant]
     Dosage: UNK
     Dates: start: 20020807

REACTIONS (1)
  - Gastrointestinal haemorrhage [Unknown]
